FAERS Safety Report 4870641-6 (Version None)
Quarter: 2005Q4

REPORT INFORMATION
  Report Type: 
  Country: None (occurrence: None)
  Receive Date: 20051228
  Receipt Date: 20051209
  Transmission Date: 20060501
  Serious: Yes (Death)
  Sender: FDA-Public Use
  Company Number: US_0510123276

PATIENT
  Age: 17 Year
  Sex: Male

DRUGS (5)
  1. STRATTERA [Suspect]
     Indication: DISTURBANCE IN ATTENTION
     Dosage: 40 MG, DAILY (1/D), UNK
     Dates: start: 20041015, end: 20051201
  2. LITHIUM CARBONATE [Concomitant]
  3. TRILEPTAL [Concomitant]
  4. RANITIDINE [Concomitant]
  5. ALPRAZOLAM [Concomitant]

REACTIONS (2)
  - COMPLETED SUICIDE [None]
  - OVERDOSE [None]
